FAERS Safety Report 9852153 (Version 1)
Quarter: 2013Q4

REPORT INFORMATION
  Report Type: Spontaneous
  Country: US (occurrence: None)
  Receive Date: 20131127
  Receipt Date: 20131127
  Transmission Date: 20140711
  Serious: No
  Sender: FDA-Public Use
  Company Number: 223449LEO

PATIENT
  Age: 66 Year
  Sex: Male

DRUGS (1)
  1. PICATO [Suspect]
     Indication: ACTINIC KERATOSIS
     Dosage: (ONCE DAILY FOR 3 DAYS), TOPICAL
     Dates: start: 20130809, end: 20130811

REACTIONS (10)
  - Foreign body sensation in eyes [None]
  - Rhinalgia [None]
  - Eye swelling [None]
  - Application site vesicles [None]
  - Application site exfoliation [None]
  - Application site erythema [None]
  - Application site pain [None]
  - Accidental exposure to product [None]
  - Drug administered at inappropriate site [None]
  - Product formulation issue [None]
